FAERS Safety Report 21306941 (Version 2)
Quarter: 2022Q3

REPORT INFORMATION
  Report Type: Spontaneous
  Country: JP (occurrence: JP)
  Receive Date: 20220908
  Receipt Date: 20220920
  Transmission Date: 20221026
  Serious: Yes (Death, Hospitalization)
  Sender: FDA-Public Use
  Company Number: JP-ELI_LILLY_AND_COMPANY-JP202209002153

PATIENT
  Age: 78 Year
  Sex: Male

DRUGS (2)
  1. CYRAMZA [Suspect]
     Active Substance: RAMUCIRUMAB
     Indication: Gastric cancer recurrent
     Route: 041
  2. IRINOTECAN [Suspect]
     Active Substance: IRINOTECAN
     Indication: Gastric cancer recurrent
     Route: 065

REACTIONS (2)
  - Acute kidney injury [Fatal]
  - Pancytopenia [Unknown]

NARRATIVE: CASE EVENT DATE: 20220801
